FAERS Safety Report 13779106 (Version 2)
Quarter: 2017Q3

REPORT INFORMATION
  Report Type: Spontaneous
  Country: US (occurrence: US)
  Receive Date: 20170721
  Receipt Date: 20170817
  Transmission Date: 20171127
  Serious: Yes (Hospitalization, Other)
  Sender: FDA-Public Use
  Company Number: US-009507513-1707USA008440

PATIENT
  Age: 52 Year
  Sex: Male
  Weight: 69.75 kg

DRUGS (13)
  1. ALBUTEROL SULFATE. [Concomitant]
     Active Substance: ALBUTEROL SULFATE
     Dosage: ACT INHALER
     Route: 055
  2. CALCIUM D (CALCIUM CARBONATE (+) CHOLECALCIFEROL) [Concomitant]
     Dosage: INTAKE BY MOUTH
     Route: 048
  3. OXYCODONE [Concomitant]
     Active Substance: OXYCODONE
     Indication: PAIN
     Dosage: 1-2 TABLETS EVERY 3-4 HOURS  PRN
  4. ZYRTEC-D [Concomitant]
     Active Substance: CETIRIZINE HYDROCHLORIDE\PSEUDOEPHEDRINE HYDROCHLORIDE
     Indication: NASAL CONGESTION
  5. LUNESTA [Concomitant]
     Active Substance: ESZOPICLONE
     Indication: INSOMNIA
     Dosage: 3 MG TABLET, TAKE 1 TABLET BY MOUTH DAILY AT BED TIME AS NEEDED
     Route: 048
  6. ZYRTEC-D [Concomitant]
     Active Substance: CETIRIZINE HYDROCHLORIDE\PSEUDOEPHEDRINE HYDROCHLORIDE
     Indication: HYPERSENSITIVITY
     Dosage: 5-120 MG TABLET, AT 12 HR. TAKE BY MOUTH
     Route: 048
  7. MINERALS (UNSPECIFIED) (+) VITAMINS (UNSPECIFIED) [Concomitant]
     Dosage: TAKE BY MOUTH
     Route: 048
  8. PANCRELIPASE. [Concomitant]
     Active Substance: PANCRELIPASE
     Dosage: 24000 UNITS PO CPEP, TAKE BY MOUTH 4 TIMES A DAY BEFORE MEALS AND BEDTIME
     Route: 048
  9. KEYTRUDA [Suspect]
     Active Substance: PEMBROLIZUMAB
     Indication: LUNG ADENOCARCINOMA STAGE IV
     Dosage: 200 MG, Q3WEEKS
     Route: 041
     Dates: start: 20160407, end: 20170423
  10. ALPRAZOLAM. [Concomitant]
     Active Substance: ALPRAZOLAM
     Dosage: TAKE 0.5 MG BY MOUTH
     Route: 048
  11. PROBIOTICS (UNSPECIFIED) [Concomitant]
     Active Substance: PROBIOTICS NOS
     Dosage: UNK, QD
     Route: 048
  12. FLUTICASONE PROPIONATE (+) SALMETEROL XINAFOATE [Concomitant]
     Active Substance: FLUTICASONE PROPIONATE\SALMETEROL XINAFOATE
     Dosage: 250/50 MICROGRAM/DOSE, DISKUSINHALER, INHALE 1 PUFF
  13. THIAMINE. [Concomitant]
     Active Substance: THIAMINE
     Dosage: TAKE 100 MG BY MOUTH
     Route: 048

REACTIONS (1)
  - Adrenal insufficiency [Unknown]

NARRATIVE: CASE EVENT DATE: 20170428
